FAERS Safety Report 6321767-1 (Version None)
Quarter: 2009Q3

REPORT INFORMATION
  Report Type: 
  Country: None (occurrence: None)
  Receive Date: 20090824
  Receipt Date: 20090812
  Transmission Date: 20100115
  Serious: Yes (Other)
  Sender: FDA-Public Use
  Company Number: US-ROCHE-649925

PATIENT
  Sex: Male

DRUGS (2)
  1. PEG-INTERFERON A-2A (RO 25-8310) [Suspect]
     Dosage: FORM: PRE-FILLED SYRINGE
     Route: 065
     Dates: start: 20090619
  2. RIBASPHERE [Suspect]
     Route: 065
     Dates: start: 20090619

REACTIONS (2)
  - CATARACT [None]
  - MACULAR DEGENERATION [None]
